FAERS Safety Report 6710706-7 (Version None)
Quarter: 2010Q2

REPORT INFORMATION
  Report Type: 
  Country: None (occurrence: None)
  Receive Date: 20100504
  Receipt Date: 20100504
  Transmission Date: 20101027
  Serious: Yes (Other)
  Sender: FDA-Public Use
  Company Number: None

PATIENT
  Age: 11 Month
  Sex: Female
  Weight: 10.8863 kg

DRUGS (3)
  1. TYLENOL (CAPLET) [Suspect]
     Indication: DISCOMFORT
     Dosage: .8 ML EVERY 6 HOURS PO
     Route: 048
     Dates: start: 20100101, end: 20100420
  2. TYLENOL (CAPLET) [Suspect]
     Indication: PAIN
     Dosage: .8 ML EVERY 6 HOURS PO
     Route: 048
     Dates: start: 20100101, end: 20100420
  3. TYLENOL (CAPLET) [Suspect]
     Indication: SCREAMING
     Dosage: .8 ML EVERY 6 HOURS PO
     Route: 048
     Dates: start: 20100101, end: 20100420

REACTIONS (2)
  - MIDDLE INSOMNIA [None]
  - SCREAMING [None]
